FAERS Safety Report 25742818 (Version 1)
Quarter: 2025Q3

REPORT INFORMATION
  Report Type: Spontaneous
  Country: US (occurrence: US)
  Receive Date: 20250830
  Receipt Date: 20250830
  Transmission Date: 20251020
  Serious: No
  Sender: AMNEAL
  Company Number: US-AMNEAL PHARMACEUTICALS-2024-AMRX-04516

PATIENT
  Sex: Female

DRUGS (2)
  1. GUAIFENESIN [Suspect]
     Active Substance: GUAIFENESIN
     Indication: Secretion discharge
     Route: 048
     Dates: start: 20241206, end: 20241209
  2. METOPROLOL [Concomitant]
     Active Substance: METOPROLOL
     Indication: Blood pressure increased
     Route: 065

REACTIONS (1)
  - Condition aggravated [Recovered/Resolved]

NARRATIVE: CASE EVENT DATE: 20241206
